FAERS Safety Report 20626134 (Version 1)
Quarter: 2022Q1

REPORT INFORMATION
  Report Type: Report from Study
  Country: US (occurrence: US)
  Receive Date: 20220323
  Receipt Date: 20220323
  Transmission Date: 20220424
  Serious: No
  Sender: FDA-Public Use
  Company Number: US-Ipsen Biopharmaceuticals, Inc.-2022-07360

PATIENT
  Age: 44 Year
  Sex: Female

DRUGS (1)
  1. SOMATULINE DEPOT [Suspect]
     Active Substance: LANREOTIDE ACETATE
     Indication: Product used for unknown indication
     Dosage: 120 MG EVERY 28 DAYS
     Route: 058
     Dates: start: 202103

REACTIONS (6)
  - Arthralgia [Recovered/Resolved]
  - Back pain [Recovered/Resolved]
  - Depressed mood [Not Recovered/Not Resolved]
  - Chest pain [Recovered/Resolved]
  - Injection site mass [Not Recovered/Not Resolved]
  - Blood glucose increased [Recovered/Resolved]

NARRATIVE: CASE EVENT DATE: 20210101
